FAERS Safety Report 4749994-5 (Version None)
Quarter: 2005Q3

REPORT INFORMATION
  Report Type: 
  Country: None (occurrence: None)
  Receive Date: 20050822
  Receipt Date: 20050706
  Transmission Date: 20060218
  Serious: Yes (Hospitalization, Disabling)
  Sender: FDA-Public Use
  Company Number: US-MERCK-0507USA00607

PATIENT
  Age: 60 Year
  Sex: Male
  Weight: 93 kg

DRUGS (8)
  1. VIOXX [Suspect]
     Indication: ARTHRALGIA
     Route: 048
     Dates: start: 20010101, end: 20040930
  2. VIOXX [Suspect]
     Indication: BACK PAIN
     Route: 048
     Dates: start: 20010101, end: 20040930
  3. SYNTHROID [Concomitant]
     Route: 065
  4. AMARYL [Concomitant]
     Route: 065
  5. RANITIDINE [Concomitant]
     Route: 065
  6. ASPIRIN [Concomitant]
     Route: 065
  7. CENTRUM [Concomitant]
     Route: 065
  8. LIPITOR [Concomitant]
     Route: 065

REACTIONS (14)
  - ANAEMIA [None]
  - CHEST DISCOMFORT [None]
  - CORONARY ARTERY DISEASE [None]
  - EPIDERMAL NAEVUS [None]
  - FATIGUE [None]
  - HYPERLIPIDAEMIA [None]
  - HYPOAESTHESIA [None]
  - METABOLIC SYNDROME [None]
  - MITRAL VALVE INCOMPETENCE [None]
  - MYOCARDIAL INFARCTION [None]
  - RASH PRURITIC [None]
  - SKIN DISORDER [None]
  - TRICUSPID VALVE INCOMPETENCE [None]
  - WEIGHT INCREASED [None]
